FAERS Safety Report 23851095 (Version 5)
Quarter: 2024Q2

REPORT INFORMATION
  Report Type: Spontaneous
  Country: US (occurrence: US)
  Receive Date: 20240514
  Receipt Date: 20240611
  Transmission Date: 20240715
  Serious: No
  Sender: FDA-Public Use
  Company Number: US-HALEON-2169518

PATIENT

DRUGS (6)
  1. FLONASE ALLERGY RELIEF [Suspect]
     Active Substance: FLUTICASONE PROPIONATE
     Indication: Product used for unknown indication
     Dosage: EXPDATE:202310EXPDATE:202310EXPDATE:202310EXPDATE:202310
  2. FLONASE ALLERGY RELIEF [Suspect]
     Active Substance: FLUTICASONE PROPIONATE
     Dosage: EXPDATE:202503EXPDATE:202503EXPDATE:202503EXPDATE:202503
  3. FLONASE ALLERGY RELIEF [Suspect]
     Active Substance: FLUTICASONE PROPIONATE
     Dosage: EXPDATE:202501EXPDATE:202501EXPDATE:202501EXPDATE:202501
  4. FLONASE ALLERGY RELIEF [Suspect]
     Active Substance: FLUTICASONE PROPIONATE
     Dosage: EXPDATE:202501EXPDATE:202501EXPDATE:202501EXPDATE:202501
  5. FLONASE ALLERGY RELIEF [Suspect]
     Active Substance: FLUTICASONE PROPIONATE
     Dosage: EXPDATE:202411EXPDATE:202411EXPDATE:202411EXPDATE:202411
  6. FLONASE ALLERGY RELIEF [Suspect]
     Active Substance: FLUTICASONE PROPIONATE
     Dosage: EXPDATE:202410EXPDATE:202410EXPDATE:202410EXPDATE:202410

REACTIONS (2)
  - Wrong technique in device usage process [Unknown]
  - Product complaint [Unknown]
